FAERS Safety Report 10682883 (Version 3)
Quarter: 2015Q1

REPORT INFORMATION
  Report Type: Report from Study
  Country: FR (occurrence: FR)
  Receive Date: 20141230
  Receipt Date: 20150119
  Transmission Date: 20150720
  Serious: Yes (Death, Hospitalization, Other)
  Sender: FDA-Public Use
  Company Number: PHHY2014FR163176

PATIENT
  Age: 53 Year
  Sex: Female
  Weight: 46 kg

DRUGS (4)
  1. LDK378 [Suspect]
     Active Substance: CERITINIB
     Indication: BRONCHIAL CARCINOMA
     Dosage: 750 MG, QD
     Route: 048
     Dates: start: 20140812, end: 20141126
  2. LDK378 [Suspect]
     Active Substance: CERITINIB
     Indication: METASTASES TO CENTRAL NERVOUS SYSTEM
  3. LDK378 [Suspect]
     Active Substance: CERITINIB
     Indication: NON-SMALL CELL LUNG CANCER METASTATIC
  4. EFFEXOR [Concomitant]
     Active Substance: VENLAFAXINE HYDROCHLORIDE
     Indication: PRODUCT USED FOR UNKNOWN INDICATION
     Dosage: 35.5 MG, QD
     Route: 048
     Dates: end: 20141122

REACTIONS (8)
  - Malignant neoplasm progression [Fatal]
  - Metastases to meninges [Fatal]
  - Weight decreased [Recovering/Resolving]
  - Diarrhoea [Recovering/Resolving]
  - Neoplasm malignant [Unknown]
  - Speech disorder [Unknown]
  - Partial seizures [Fatal]
  - Drug-induced liver injury [Recovered/Resolved]

NARRATIVE: CASE EVENT DATE: 20141121
